FAERS Safety Report 14959265 (Version 1)
Quarter: 2018Q2

REPORT INFORMATION
  Report Type: Spontaneous
  Country: GB (occurrence: GB)
  Receive Date: 20180531
  Receipt Date: 20180531
  Transmission Date: 20180711
  Serious: Yes (Life-Threatening, Disabling)
  Sender: FDA-Public Use
  Company Number: GB-PFIZER INC-2018220199

PATIENT
  Age: 62 Year
  Sex: Female
  Weight: 76 kg

DRUGS (3)
  1. SERTRALINE HCL [Suspect]
     Active Substance: SERTRALINE HYDROCHLORIDE
     Indication: DEPRESSION
     Dosage: 50 MG, 1X/DAY
     Route: 048
     Dates: start: 20170707, end: 20180406
  2. SIMVASTATIN. [Concomitant]
     Active Substance: SIMVASTATIN
     Dosage: UNK
  3. PROPRANOLOL [Concomitant]
     Active Substance: PROPRANOLOL HYDROCHLORIDE
     Dosage: UNK

REACTIONS (4)
  - Brain injury [Unknown]
  - Long QT syndrome [Recovering/Resolving]
  - Cardiac arrest [Not Recovered/Not Resolved]
  - Ventricular fibrillation [Not Recovered/Not Resolved]

NARRATIVE: CASE EVENT DATE: 20180406
